FAERS Safety Report 10505344 (Version 2)
Quarter: 2015Q1

REPORT INFORMATION
  Report Type: Spontaneous
  Country: JP (occurrence: JP)
  Receive Date: 20141008
  Receipt Date: 20150226
  Transmission Date: 20150720
  Serious: Yes (Life-Threatening)
  Sender: FDA-Public Use
  Company Number: JP-GE HEALTHCARE MEDICAL DIAGNOSTICS-MSTR-PR-1409S-0026

PATIENT
  Age: 77 Year
  Sex: Male
  Weight: 40.5 kg

DRUGS (3)
  1. DENOSUMAB [Concomitant]
     Active Substance: DENOSUMAB
  2. METASTRON [Suspect]
     Active Substance: STRONTIUM CHLORIDE SR-89
     Indication: DIAGNOSTIC PROCEDURE
  3. METASTRON [Suspect]
     Active Substance: STRONTIUM CHLORIDE SR-89
     Indication: METASTATIC PAIN
     Dosage: DOSE NOT REPORTED
     Route: 042
     Dates: start: 20140627, end: 20140627

REACTIONS (2)
  - Anaemia [Recovering/Resolving]
  - Platelet count decreased [Recovering/Resolving]

NARRATIVE: CASE EVENT DATE: 201403
